FAERS Safety Report 7894726-5 (Version None)
Quarter: 2011Q4

REPORT INFORMATION
  Report Type: 
  Country: None (occurrence: None)
  Receive Date: 20111106
  Receipt Date: 20110817
  Transmission Date: 20120403
  Serious: No
  Sender: FDA-Public Use
  Company Number: US-AMGEN-USASP2011042034

PATIENT
  Sex: Female

DRUGS (5)
  1. MOTRIN [Concomitant]
     Dosage: 400 MG, UNK
  2. ENBREL [Suspect]
     Indication: PRODUCT USED FOR UNKNOWN INDICATION
     Dosage: 50 MG, QWK
     Route: 058
  3. METHOTREXATE [Concomitant]
     Dosage: 2.5 MG, UNK
  4. LEVOTHROID [Concomitant]
     Dosage: UNK
  5. MULTI-VITAMINS [Concomitant]

REACTIONS (2)
  - INJECTION SITE EXTRAVASATION [None]
  - INJECTION SITE PAIN [None]
